FAERS Safety Report 5752367-X (Version None)
Quarter: 2008Q2

REPORT INFORMATION
  Report Type: 
  Country: None (occurrence: None)
  Receive Date: 20080529
  Receipt Date: 20080516
  Transmission Date: 20081010
  Serious: Yes (Other)
  Sender: FDA-Public Use
  Company Number: GB-BAUSCH-2008BL002221

PATIENT
  Age: 83 Year
  Sex: Female

DRUGS (5)
  1. PREDNISOLONE SODIUM PHOSPHATE [Suspect]
     Indication: ULCERATIVE KERATITIS
     Route: 047
     Dates: start: 20041201
  2. TIMOLOL MALEATE [Suspect]
     Indication: ULCERATIVE KERATITIS
     Route: 047
     Dates: start: 20041201
  3. OFLOXACIN [Suspect]
     Indication: ULCERATIVE KERATITIS
     Route: 047
     Dates: start: 20041201
  4. CEFUROXIME [Suspect]
     Indication: ULCERATIVE KERATITIS
     Route: 047
     Dates: start: 20041201
  5. PREDNISOLONE [Concomitant]
     Indication: ULCERATIVE KERATITIS
     Route: 048
     Dates: start: 20041201

REACTIONS (2)
  - CORNEAL DEGENERATION [None]
  - CORNEAL DEPOSITS [None]
